FAERS Safety Report 9385952 (Version 1)
Quarter: 2013Q3

REPORT INFORMATION
  Report Type: Spontaneous
  Country: PR (occurrence: PR)
  Receive Date: 20130705
  Receipt Date: 20130705
  Transmission Date: 20140515
  Serious: Yes (Hospitalization)
  Sender: FDA-Public Use
  Company Number: PR-BAXTER-2013BAX024128

PATIENT
  Age: 9 Day
  Sex: Female
  Weight: 1 kg

DRUGS (6)
  1. 70% DEXTROSE INJECTION USP [Suspect]
     Indication: PARENTERAL NUTRITION
     Route: 042
     Dates: start: 20130606, end: 20130608
  2. POTASSIUM CHLORIDE [Suspect]
     Indication: PARENTERAL NUTRITION
     Route: 042
     Dates: start: 20130606, end: 20130608
  3. POTASSIUM CHLORIDE [Suspect]
     Dates: start: 20130606, end: 20130608
  4. SODIUM CHLORIDE [Suspect]
     Indication: PARENTERAL NUTRITION
     Route: 042
     Dates: start: 20130606, end: 20130608
  5. PREMASOL - SULFITE-FREE (AMINO ACID) [Suspect]
     Indication: PARENTERAL NUTRITION
     Route: 042
     Dates: start: 20130606, end: 20130608
  6. STERILE WATER FOR INJECTION [Suspect]
     Indication: PARENTERAL NUTRITION
     Route: 042
     Dates: start: 20130606, end: 20130608

REACTIONS (3)
  - Urine output increased [Recovered/Resolved]
  - Glycosuria [Recovered/Resolved]
  - Proteinuria [Recovered/Resolved]
